FAERS Safety Report 8559383-3 (Version None)
Quarter: 2012Q3

REPORT INFORMATION
  Report Type: 
  Country: None (occurrence: None)
  Receive Date: 20120802
  Receipt Date: 20120723
  Transmission Date: 20120928
  Serious: Yes (Hospitalization)
  Sender: FDA-Public Use
  Company Number: JP-JNJFOC-20120712426

PATIENT
  Sex: Male

DRUGS (16)
  1. INFLIXIMAB, RECOMBINANT [Suspect]
     Route: 042
     Dates: start: 20100126, end: 20100129
  2. PREDNISOLONE ACETATE [Suspect]
     Indication: RHEUMATOID ARTHRITIS
     Route: 048
  3. PREDNISOLONE [Suspect]
     Route: 048
  4. RIBOFLAVIN TAB [Concomitant]
     Route: 065
  5. VOLTAREN [Concomitant]
     Route: 065
  6. INFLIXIMAB, RECOMBINANT [Suspect]
     Indication: RHEUMATOID ARTHRITIS
     Route: 042
     Dates: start: 20101222
  7. PREDNISOLONE [Suspect]
     Indication: RHEUMATOID ARTHRITIS
     Route: 048
  8. METHOTREXATE [Suspect]
     Route: 065
     Dates: start: 20110325
  9. FAMOTIDINE [Concomitant]
     Route: 065
  10. SULFAMETHOXAZOLE AND TRIMETHOPRIM [Concomitant]
     Route: 065
  11. FOLIC ACID [Concomitant]
     Route: 065
  12. SULFASALAZINE [Concomitant]
     Route: 065
  13. LOXONIN [Concomitant]
     Route: 065
  14. ORENCIA [Suspect]
     Indication: RHEUMATOID ARTHRITIS
     Route: 042
     Dates: start: 20110202
  15. METHOTREXATE [Suspect]
     Indication: RHEUMATOID ARTHRITIS
     Route: 065
     Dates: end: 20110215
  16. RABEPRAZOLE SODIUM [Concomitant]
     Route: 065

REACTIONS (3)
  - PNEUMONIA [None]
  - THERAPEUTIC PRODUCT INEFFECTIVE [None]
  - CEREBELLAR INFARCTION [None]
